FAERS Safety Report 4432613-5 (Version None)
Quarter: 2004Q3

REPORT INFORMATION
  Report Type: 
  Country: None (occurrence: None)
  Receive Date: 20040823
  Receipt Date: 20040810
  Transmission Date: 20050211
  Serious: Yes (Disabling)
  Sender: FDA-Public Use
  Company Number: CIP04001781

PATIENT
  Age: 88 Year
  Sex: Female

DRUGS (4)
  1. RISEDRONATE SODIUM [Suspect]
     Indication: OSTEOPOROSIS
     Dosage: 2.5 MG DAILY, ORAL
     Route: 048
     Dates: start: 20031017, end: 20040705
  2. AMOBAN (ZOPICLONE) [Concomitant]
  3. ROCATROL (CALCITRIOL) [Concomitant]
  4. CALCIUM LACTATE (CALCIUM LACTATE) [Concomitant]

REACTIONS (2)
  - OSTEOSCLEROSIS [None]
  - STRESS FRACTURE [None]
